FAERS Safety Report 9294963 (Version 2)
Quarter: 2013Q2

REPORT INFORMATION
  Report Type: Spontaneous
  Country: US (occurrence: US)
  Receive Date: 20130517
  Receipt Date: 20130523
  Transmission Date: 20140414
  Serious: Yes (Other)
  Sender: FDA-Public Use
  Company Number: US-PFIZER INC-2013151467

PATIENT
  Age: 56 Year
  Sex: Female
  Weight: 54.42 kg

DRUGS (2)
  1. LYRICA [Suspect]
     Indication: FIBROMYALGIA
     Dosage: 100 MG, 3X/DAY
     Route: 048
     Dates: start: 201102, end: 201303
  2. LYRICA [Suspect]
     Dosage: 50 MG, 3X/DAY
     Dates: start: 201304

REACTIONS (12)
  - Amnesia [Unknown]
  - Drug withdrawal syndrome [Recovered/Resolved]
  - Aphagia [Recovered/Resolved]
  - Haemorrhage [Unknown]
  - Urinary tract infection [Unknown]
  - Kidney infection [Unknown]
  - Nausea [Recovered/Resolved]
  - Tremor [Recovered/Resolved]
  - Feeling abnormal [Recovered/Resolved]
  - Insomnia [Recovered/Resolved]
  - Hypochondriasis [Unknown]
  - Malaise [Unknown]
